FAERS Safety Report 9925959 (Version 2)
Quarter: 2014Q1

REPORT INFORMATION
  Report Type: Spontaneous
  Country: US (occurrence: US)
  Receive Date: 20140226
  Receipt Date: 20140226
  Transmission Date: 20141002
  Serious: No
  Sender: FDA-Public Use
  Company Number: US-BRACCO-009611

PATIENT
  Sex: 0

DRUGS (1)
  1. ISOVUE 300 [Suspect]
     Indication: DIAGNOSTIC PROCEDURE
     Dates: start: 20130521, end: 20130521

REACTIONS (1)
  - Drug ineffective [Unknown]
